FAERS Safety Report 9250835 (Version 1)
Quarter: 2013Q1

REPORT INFORMATION
  Report Type: Spontaneous
  Country: US (occurrence: None)
  Receive Date: 20130305
  Receipt Date: 20130305
  Transmission Date: 20140127
  Serious: Yes (Other)
  Sender: FDA-Public Use
  Company Number: 163-21880-12100664

PATIENT
  Age: 74 Year
  Sex: Male

DRUGS (9)
  1. REVLIMID [Suspect]
     Indication: MYELODYSPLASTIC SYNDROME
     Dosage: 10MG, 21 IN 21 D, PO
     Route: 048
     Dates: start: 20120912
  2. WHOLE BLOOD [Concomitant]
  3. ALLOPURINOL [Concomitant]
  4. ATENOLOL (ATENOLOL) [Concomitant]
  5. FOSINOPRIL SODIUM (FOSINOPRIL SODIUM) [Concomitant]
  6. NAPROXEN (NAPROXEN) [Concomitant]
  7. PROCHLORPERAZINE MALEATE (PROCHLORPERAZINE MALEATE) [Concomitant]
  8. PROTONIX [Concomitant]
  9. PROCRIT [Concomitant]

REACTIONS (3)
  - Refractory cytopenia with unilineage dysplasia [None]
  - Haemoglobin decreased [None]
  - Refractory cytopenia with unilineage dysplasia [None]
